FAERS Safety Report 6293852-4 (Version None)
Quarter: 2009Q3

REPORT INFORMATION
  Report Type: 
  Country: None (occurrence: None)
  Receive Date: 20090731
  Receipt Date: 20090731
  Transmission Date: 20100115
  Serious: Yes (Other)
  Sender: FDA-Public Use
  Company Number: None

PATIENT
  Sex: Male
  Weight: 81.6475 kg

DRUGS (1)
  1. LAMOTRIGINE [Suspect]
     Dosage: 400MG, DAILY, PO
     Route: 048
     Dates: start: 20080901, end: 20081124

REACTIONS (6)
  - AFFECT LABILITY [None]
  - ANXIETY [None]
  - CRYING [None]
  - DYSPHORIA [None]
  - PRODUCT SUBSTITUTION ISSUE [None]
  - SPEECH DISORDER [None]
